FAERS Safety Report 9945907 (Version 2)
Quarter: 2014Q1

REPORT INFORMATION
  Report Type: Spontaneous
  Country: US (occurrence: US)
  Receive Date: 20140303
  Receipt Date: 20140303
  Transmission Date: 20141002
  Serious: No
  Sender: FDA-Public Use
  Company Number: US-AMGEN-USASP2013077520

PATIENT
  Age: 56 Year
  Sex: Female
  Weight: 86.17 kg

DRUGS (4)
  1. ENBREL [Suspect]
     Indication: PSORIATIC ARTHROPATHY
     Dosage: 50 MG, QWK
     Route: 058
     Dates: start: 20130517
  2. ATENOLOL [Concomitant]
     Dosage: 25 MG, UNK
     Route: 048
  3. NEXIUM                             /01479302/ [Concomitant]
     Dosage: 20 MG, UNK
     Route: 048
  4. HYDROCHLORIC ACID [Concomitant]
     Dosage: UNK
     Route: 058

REACTIONS (5)
  - Vertigo [Unknown]
  - Pain in extremity [Unknown]
  - Arthralgia [Unknown]
  - Hypoaesthesia [Not Recovered/Not Resolved]
  - Paraesthesia [Not Recovered/Not Resolved]
